FAERS Safety Report 19176717 (Version 3)
Quarter: 2024Q2

REPORT INFORMATION
  Report Type: Spontaneous
  Country: CZ (occurrence: CZ)
  Receive Date: 20210424
  Receipt Date: 20240416
  Transmission Date: 20240716
  Serious: Yes (Other)
  Sender: FDA-Public Use
  Company Number: CZ-ACCORD-223200

PATIENT
  Age: 7 Decade
  Sex: Female

DRUGS (4)
  1. FLUOROURACIL [Suspect]
     Active Substance: FLUOROURACIL
     Indication: Oesophageal carcinoma
     Dates: start: 201803, end: 2018
  2. DOCETAXEL [Suspect]
     Active Substance: DOCETAXEL\DOCETAXEL ANHYDROUS
     Indication: Oesophageal carcinoma
     Dates: start: 201803, end: 2018
  3. OXALIPLATIN [Suspect]
     Active Substance: OXALIPLATIN
     Indication: Oesophageal carcinoma
     Dates: start: 201803, end: 2018
  4. LEUCOVORIN [Suspect]
     Active Substance: LEUCOVORIN\LEUCOVORIN CALCIUM
     Indication: Oesophageal carcinoma
     Dates: start: 201803, end: 2018

REACTIONS (6)
  - Neutropenia [Recovered/Resolved]
  - Fall [Recovered/Resolved]
  - Spinal fracture [Recovered/Resolved]
  - Anaemia [Recovered/Resolved]
  - Off label use [Unknown]
  - Neuropathy peripheral [Not Recovered/Not Resolved]

NARRATIVE: CASE EVENT DATE: 20180301
